FAERS Safety Report 25603426 (Version 1)
Quarter: 2025Q3

REPORT INFORMATION
  Report Type: Spontaneous
  Country: EU (occurrence: EU)
  Receive Date: 20250724
  Receipt Date: 20250724
  Transmission Date: 20251020
  Serious: Yes (Hospitalization, Other)
  Sender: BOEHRINGER INGELHEIM
  Company Number: EU-BoehringerIngelheim-2025-BI-083905

PATIENT
  Age: 71 Year
  Sex: Female

DRUGS (1)
  1. DABIGATRAN [Suspect]
     Active Substance: DABIGATRAN
     Indication: Atrial fibrillation

REACTIONS (4)
  - Drug ineffective [Recovered/Resolved]
  - Ventricular tachycardia [Recovered/Resolved]
  - Pulmonary embolism [Recovered/Resolved]
  - Arrhythmogenic right ventricular dysplasia [Not Recovered/Not Resolved]
